FAERS Safety Report 17032321 (Version 2)
Quarter: 2019Q4

REPORT INFORMATION
  Report Type: Spontaneous
  Country: JP (occurrence: JP)
  Receive Date: 20191114
  Receipt Date: 20191122
  Transmission Date: 20200122
  Serious: Yes (Death, Other)
  Sender: FDA-Public Use
  Company Number: JP-EISAI MEDICAL RESEARCH-EC-2019-065259

PATIENT
  Age: 80 Year
  Sex: Male

DRUGS (1)
  1. LENVIMA [Suspect]
     Active Substance: LENVATINIB
     Indication: HEPATOCELLULAR CARCINOMA
     Route: 048

REACTIONS (7)
  - Decreased appetite [Unknown]
  - Pneumonia [Unknown]
  - Cholangitis [Unknown]
  - Sepsis [Unknown]
  - Malaise [Unknown]
  - Death [Fatal]
  - Hypertension [Unknown]
